FAERS Safety Report 11889049 (Version 1)
Quarter: 2016Q1

REPORT INFORMATION
  Report Type: Spontaneous
  Country: US (occurrence: None)
  Receive Date: 20160104
  Receipt Date: 20160104
  Transmission Date: 20160526
  Serious: Yes (Hospitalization)
  Sender: FDA-Public Use
  Company Number: None

PATIENT
  Age: 55 Year
  Sex: Male

DRUGS (2)
  1. TAFINLAR [Suspect]
     Active Substance: DABRAFENIB MESYLATE
     Dosage: 2 PILLS TWICE DAILY
     Route: 048
     Dates: start: 20151212, end: 20151216
  2. MEKINIST [Suspect]
     Active Substance: TRAMETINIB DIMETHYL SULFOXIDE
     Dosage: 1 PILL ONCE DAILY
     Route: 048
     Dates: start: 20151212, end: 20151216

REACTIONS (4)
  - Mobility decreased [None]
  - Back pain [None]
  - Pyrexia [None]
  - Nausea [None]
